FAERS Safety Report 4642852-6 (Version None)
Quarter: 2005Q2

REPORT INFORMATION
  Report Type: 
  Country: None (occurrence: None)
  Receive Date: 20050422
  Receipt Date: 20050411
  Transmission Date: 20051028
  Serious: Yes (Hospitalization)
  Sender: FDA-Public Use
  Company Number: FR-BRISTOL-MYERS SQUIBB COMPANY-12930566

PATIENT
  Age: 66 Year
  Sex: Male

DRUGS (3)
  1. IRBESARTAN [Suspect]
     Route: 048
     Dates: end: 20050206
  2. ZYLORIC [Suspect]
     Dates: end: 20050206
  3. COLCHIMAX [Suspect]
     Dates: start: 20050117, end: 20050206

REACTIONS (5)
  - AGRANULOCYTOSIS [None]
  - BONE MARROW DEPRESSION [None]
  - GENERAL PHYSICAL HEALTH DETERIORATION [None]
  - RENAL FAILURE ACUTE [None]
  - THROMBOCYTOPENIA [None]
